FAERS Safety Report 8519386-1 (Version None)
Quarter: 2012Q3

REPORT INFORMATION
  Report Type: 
  Country: None (occurrence: None)
  Receive Date: 20120718
  Receipt Date: 20120711
  Transmission Date: 20120928
  Serious: Yes (Hospitalization)
  Sender: FDA-Public Use
  Company Number: JP-PFIZER INC-2012166844

PATIENT
  Age: 67 Year
  Sex: Male

DRUGS (8)
  1. CYTOTEC [Concomitant]
     Dosage: UNK
     Route: 048
  2. URALYT-U [Concomitant]
     Dosage: UNK
     Route: 048
  3. PREDNISOLONE [Concomitant]
     Dosage: UNK
     Route: 048
  4. CELEBREX [Concomitant]
     Dosage: UNK
     Route: 048
  5. AZULFIDINE [Suspect]
     Indication: RHEUMATOID ARTHRITIS
     Dosage: 500 MG, 1X/DAY
     Route: 048
     Dates: start: 20120423, end: 20120506
  6. URINORM [Concomitant]
     Dosage: UNK
     Route: 048
  7. RIMATIL [Concomitant]
     Dosage: 200 MG, 1X/DAY
     Route: 048
     Dates: start: 20120423
  8. AZULFIDINE [Suspect]
     Dosage: 500MG TABS, 2 TABS/DAY
     Route: 048
     Dates: start: 20120507, end: 20120508

REACTIONS (1)
  - DRUG ERUPTION [None]
